FAERS Safety Report 5919104-7 (Version None)
Quarter: 2008Q4

REPORT INFORMATION
  Report Type: 
  Country: None (occurrence: None)
  Receive Date: 20081014
  Receipt Date: 20081014
  Transmission Date: 20090506
  Serious: Yes (Other)
  Sender: FDA-Public Use
  Company Number: None

PATIENT
  Sex: Female
  Weight: 69.4003 kg

DRUGS (1)
  1. CHANTIX [Suspect]
     Indication: SMOKING CESSATION THERAPY
     Dosage: 1 MG B.I.D. PO
     Route: 048
     Dates: start: 20080401, end: 20080610

REACTIONS (3)
  - IMPAIRED WORK ABILITY [None]
  - PERSONALITY CHANGE [None]
  - SCHIZOPHRENIA [None]
